FAERS Safety Report 6088235-6 (Version None)
Quarter: 2009Q1

REPORT INFORMATION
  Report Type: 
  Country: None (occurrence: None)
  Receive Date: 20090224
  Receipt Date: 20090217
  Transmission Date: 20090719
  Serious: Yes (Life-Threatening, Hospitalization)
  Sender: FDA-Public Use
  Company Number: ES-BAYER-200913517GPV

PATIENT
  Age: 77 Year
  Sex: Female

DRUGS (6)
  1. ADIRO [Suspect]
     Indication: DRUG USE FOR UNKNOWN INDICATION
     Dosage: TOTAL DAILY DOSE: 100 MG  UNIT DOSE: 100 MG
     Route: 048
  2. METFORMINA [Interacting]
     Indication: DIABETES MELLITUS
     Route: 048
     Dates: start: 19990101, end: 20081123
  3. CHLORTHALIDONE [Interacting]
     Indication: HYPERTENSION
     Route: 048
     Dates: end: 20081123
  4. LOSARTAN [Interacting]
     Indication: HYPERTENSION
     Route: 048
     Dates: end: 20081123
  5. DAFLON [Concomitant]
     Indication: DRUG USE FOR UNKNOWN INDICATION
     Route: 048
     Dates: end: 20081123
  6. LAURIMIC [Concomitant]
     Indication: DRUG USE FOR UNKNOWN INDICATION
     Route: 067

REACTIONS (2)
  - LACTIC ACIDOSIS [None]
  - RENAL FAILURE ACUTE [None]
